FAERS Safety Report 23410554 (Version 1)
Quarter: 2024Q1

REPORT INFORMATION
  Report Type: Spontaneous
  Country: AU (occurrence: AU)
  Receive Date: 20240117
  Receipt Date: 20240117
  Transmission Date: 20240409
  Serious: Yes (Death, Other)
  Sender: FDA-Public Use
  Company Number: AU-AMGEN-AUSSP2024006242

PATIENT
  Age: 48 Year
  Sex: Female

DRUGS (6)
  1. CARFILZOMIB [Suspect]
     Active Substance: CARFILZOMIB
     Indication: Product used for unknown indication
     Dosage: UNK
     Route: 065
     Dates: start: 201804
  2. BISOPROLOL [Suspect]
     Active Substance: BISOPROLOL\BISOPROLOL FUMARATE
     Indication: Product used for unknown indication
     Dosage: 2.5 MILLIGRAM OVER 1 WEEK
     Route: 065
  3. SPIRONOLACTONE [Suspect]
     Active Substance: SPIRONOLACTONE
     Indication: Product used for unknown indication
     Dosage: 2.5 MILLIGRAM (OVER 1 WEEK)
     Route: 065
  4. RAMIPRIL [Suspect]
     Active Substance: RAMIPRIL
     Indication: Product used for unknown indication
     Dosage: 12.5 MILLIGRAM (OVER 1 WEEK)
     Route: 065
  5. SACUBITRIL\VALSARTAN [Suspect]
     Active Substance: SACUBITRIL\VALSARTAN
     Indication: Product used for unknown indication
     Dosage: UNK UNK, BID 51/49MG
     Route: 065
  6. DAPAGLIFLOZIN [Suspect]
     Active Substance: DAPAGLIFLOZIN
     Indication: Product used for unknown indication
     Dosage: 10 MILLIGRAM, QD 2 YEARS LATER
     Route: 065

REACTIONS (25)
  - Ascites [Fatal]
  - Bradycardia [Fatal]
  - Cardiac failure [Fatal]
  - Cardiogenic shock [Fatal]
  - Effusion [Fatal]
  - Functional gastrointestinal disorder [Fatal]
  - Liver disorder [Fatal]
  - Hypoperfusion [Fatal]
  - Multiple organ dysfunction syndrome [Fatal]
  - Pulseless electrical activity [Fatal]
  - Pulmonary oedema [Fatal]
  - Renal failure [Fatal]
  - Asthenia [Unknown]
  - Anxiety [Unknown]
  - Atelectasis [Unknown]
  - Brain fog [Unknown]
  - Confusional state [Unknown]
  - Dizziness [Unknown]
  - Drug intolerance [Unknown]
  - Dyspnoea [Unknown]
  - Nausea [Unknown]
  - Pain [Unknown]
  - Poor quality sleep [Unknown]
  - Therapeutic product effect incomplete [Unknown]
  - Wheezing [Unknown]
